FAERS Safety Report 9200623 (Version 1)
Quarter: 2013Q1

REPORT INFORMATION
  Report Type: Spontaneous
  Country: US (occurrence: US)
  Receive Date: 20130330
  Receipt Date: 20130330
  Transmission Date: 20140127
  Serious: No
  Sender: FDA-Public Use
  Company Number: US-PFIZER INC-2004088025

PATIENT
  Age: 50 Year
  Sex: Female

DRUGS (2)
  1. MOTRIN IB [Suspect]
     Dosage: UNK
     Route: 048
     Dates: start: 1998
  2. MANGANESE [Concomitant]
     Dosage: UNK
     Route: 048

REACTIONS (2)
  - Nausea [Recovered/Resolved]
  - Headache [Recovered/Resolved]
